FAERS Safety Report 12414510 (Version 3)
Quarter: 2016Q3

REPORT INFORMATION
  Report Type: Spontaneous
  Country: JP (occurrence: JP)
  Receive Date: 20160528
  Receipt Date: 20160727
  Transmission Date: 20161109
  Serious: Yes (Death)
  Sender: FDA-Public Use
  Company Number: JP-AMGEN-JPNSP2016068452

PATIENT
  Age: 62 Year
  Sex: Male
  Weight: 52 kg

DRUGS (9)
  1. BUFFERIN [Concomitant]
     Active Substance: ASPIRIN
     Indication: SHUNT STENOSIS
     Dosage: 81 MG, QD
     Route: 048
     Dates: start: 20031025
  2. PRALIA [Concomitant]
     Active Substance: DENOSUMAB
     Dosage: UNK
     Dates: start: 20160615
  3. REGPARA [Suspect]
     Active Substance: CINACALCET HYDROCHLORIDE
     Dosage: 50 MG, QD
     Route: 048
     Dates: start: 20160510, end: 20160513
  4. NESP [Concomitant]
     Active Substance: DARBEPOETIN ALFA
     Dosage: 15 MUG, QWK
     Route: 042
     Dates: start: 20111119
  5. ROCALTROL [Concomitant]
     Active Substance: CALCITRIOL
     Indication: HYPERPARATHYROIDISM SECONDARY
     Dosage: 1.5 MUG, 3 TIMES/WK
     Route: 042
     Dates: start: 20150812
  6. REGPARA [Suspect]
     Active Substance: CINACALCET HYDROCHLORIDE
     Indication: HYPERPARATHYROIDISM SECONDARY
     Dosage: UNK
     Route: 048
     Dates: start: 20080608, end: 20160201
  7. MUCOSTA [Concomitant]
     Active Substance: REBAMIPIDE
     Indication: GASTRITIS
     Dosage: 100 MG, TID
     Route: 048
     Dates: start: 20031025
  8. PHOSBLOCK [Concomitant]
     Active Substance: FERRIC HYDROXIDE
     Indication: HYPERPHOSPHATAEMIA
     Dosage: 1000 MG, TID
     Route: 048
     Dates: start: 20060420, end: 20160513
  9. FOSRENOL [Concomitant]
     Active Substance: LANTHANUM CARBONATE
     Indication: HYPERPHOSPHATAEMIA
     Dosage: 500 MG, TID
     Route: 048
     Dates: start: 20130523

REACTIONS (2)
  - Pancreatitis acute [Fatal]
  - Nausea [Unknown]

NARRATIVE: CASE EVENT DATE: 20160513
